FAERS Safety Report 9691506 (Version 4)
Quarter: 2014Q1

REPORT INFORMATION
  Report Type: Spontaneous
  Country: US (occurrence: US)
  Receive Date: 20131115
  Receipt Date: 20140219
  Transmission Date: 20141002
  Serious: Yes (Life-Threatening, Hospitalization, Other)
  Sender: FDA-Public Use
  Company Number: US-ELI_LILLY_AND_COMPANY-US201309004590

PATIENT
  Age: 59 Year
  Sex: Male
  Weight: 169 kg

DRUGS (3)
  1. INSULIN HUMAN [Suspect]
     Indication: TYPE 2 DIABETES MELLITUS
     Dosage: UNK
     Route: 058
  2. INSULIN HUMAN [Suspect]
     Dosage: 125 U, TID
     Route: 058
     Dates: start: 20130202, end: 20130205
  3. INSULIN HUMAN [Suspect]
     Dosage: 75 U, EACH EVENING
     Route: 058
     Dates: start: 20130202, end: 20130205

REACTIONS (6)
  - Pneumonia [Recovered/Resolved]
  - Brain injury [Unknown]
  - Pseudomonas infection [Recovering/Resolving]
  - Hypoglycaemia [Recovered/Resolved with Sequelae]
  - Hypoglycaemia [Recovered/Resolved]
  - Incorrect dose administered [Recovered/Resolved]
